FAERS Safety Report 11806774 (Version 1)
Quarter: 2015Q4

REPORT INFORMATION
  Report Type: Report from Study
  Country: KR (occurrence: KR)
  Receive Date: 20151207
  Receipt Date: 20151207
  Transmission Date: 20160305
  Serious: Yes (Death)
  Sender: FDA-Public Use
  Company Number: KR-SHIONOGI, INC-2015001268

PATIENT
  Age: 78 Year
  Sex: Male
  Weight: 40 kg

DRUGS (7)
  1. FINIBAX [Suspect]
     Active Substance: DORIPENEM MONOHYDRATE
     Indication: PNEUMONIA
     Dosage: 0.5 G, BID
     Route: 042
     Dates: start: 20140321, end: 20140324
  2. LEVOMELS [Concomitant]
     Route: 065
     Dates: start: 20140321, end: 20140324
  3. DEXAMETHASONE. [Concomitant]
     Active Substance: DEXAMETHASONE
     Route: 065
     Dates: start: 20140318, end: 20140324
  4. BINICAPIN [Concomitant]
     Route: 065
     Dates: start: 20140314, end: 20140324
  5. VANCOMYCIN [Concomitant]
     Active Substance: VANCOMYCIN
     Route: 065
     Dates: start: 20140321, end: 20140323
  6. ULTIVA [Concomitant]
     Active Substance: REMIFENTANIL HYDROCHLORIDE
     Route: 065
     Dates: start: 20140316, end: 20140324
  7. PANTOLOC                           /01263204/ [Concomitant]
     Active Substance: PANTOPRAZOLE SODIUM
     Route: 065
     Dates: start: 20140317, end: 20140324

REACTIONS (1)
  - Shock [Fatal]

NARRATIVE: CASE EVENT DATE: 20140324
